FAERS Safety Report 8053609-0 (Version None)
Quarter: 2012Q1

REPORT INFORMATION
  Report Type: 
  Country: None (occurrence: None)
  Receive Date: 20120118
  Receipt Date: 20120109
  Transmission Date: 20120608
  Serious: Yes (Hospitalization, Other)
  Sender: FDA-Public Use
  Company Number: US-MERCK-1102USA00897

PATIENT
  Age: 62 Year
  Sex: Female

DRUGS (2)
  1. BONIVA [Suspect]
     Route: 048
     Dates: start: 20070101, end: 20100101
  2. FOSAMAX [Suspect]
     Indication: PROPHYLAXIS
     Route: 048
     Dates: start: 19990101, end: 20070101

REACTIONS (8)
  - THROMBOSIS [None]
  - DIZZINESS [None]
  - NAUSEA [None]
  - FEMUR FRACTURE [None]
  - CONSTIPATION [None]
  - HAEMATOCRIT DECREASED [None]
  - LOW TURNOVER OSTEOPATHY [None]
  - DIVERTICULUM OESOPHAGEAL [None]
